FAERS Safety Report 24024417 (Version 5)
Quarter: 2024Q3

REPORT INFORMATION
  Report Type: Report from Study
  Country: BE (occurrence: BE)
  Receive Date: 20240628
  Receipt Date: 20240710
  Transmission Date: 20241016
  Serious: No
  Sender: ROCHE
  Company Number: BE-ROCHE-3247659

PATIENT
  Age: 62 Year
  Sex: Male
  Weight: 84.0 kg

DRUGS (24)
  1. ALECTINIB [Suspect]
     Active Substance: ALECTINIB
     Indication: Lung cancer metastatic
     Route: 048
     Dates: start: 20180110
  2. ALECTINIB [Suspect]
     Active Substance: ALECTINIB
     Route: 048
     Dates: start: 20210819
  3. AZITHROMYCIN [Concomitant]
     Active Substance: AZITHROMYCIN
     Indication: Cough
     Route: 048
     Dates: start: 20190514
  4. MOMETASONE [Concomitant]
     Active Substance: MOMETASONE
     Indication: Cough
     Route: 045
     Dates: start: 20190514
  5. PANTOPRAZOLE SODIUM [Concomitant]
     Active Substance: PANTOPRAZOLE SODIUM
     Route: 048
  6. STEOVIT FORTE [Concomitant]
     Indication: Calcium deficiency
     Dosage: 1 CAPSULE
     Route: 048
     Dates: start: 20181112
  7. TAMSULOSIN HYDROCHLORIDE [Concomitant]
     Active Substance: TAMSULOSIN HYDROCHLORIDE
     Indication: Benign prostatic hyperplasia
     Route: 048
     Dates: start: 20180202
  8. XGEVA [Concomitant]
     Active Substance: DENOSUMAB
     Indication: Prophylaxis
     Route: 058
     Dates: start: 2018
  9. CARBOPLATIN [Concomitant]
     Active Substance: CARBOPLATIN
     Dates: start: 20230421, end: 20230421
  10. PEMETREXED [Concomitant]
     Active Substance: PEMETREXED
     Dates: start: 20230421, end: 20230421
  11. ENOXAPARIN SODIUM [Concomitant]
     Active Substance: ENOXAPARIN SODIUM
     Route: 058
     Dates: start: 20230406, end: 20230506
  12. IBUPROFEN [Concomitant]
     Active Substance: IBUPROFEN
     Route: 048
     Dates: start: 20230406, end: 20230505
  13. ACETAMINOPHEN [Concomitant]
     Active Substance: ACETAMINOPHEN
     Route: 048
     Dates: start: 20230406, end: 20230505
  14. XGEVA [Concomitant]
     Active Substance: DENOSUMAB
     Route: 058
  15. AUGMENTIN [Concomitant]
     Active Substance: AMOXICILLIN\CLAVULANATE POTASSIUM
     Route: 048
     Dates: start: 202304, end: 202304
  16. FOLIC ACID [Concomitant]
     Active Substance: FOLIC ACID
     Route: 048
     Dates: start: 20230414
  17. DEXAMETHASONE [Concomitant]
     Active Substance: DEXAMETHASONE
     Dosage: FREQUENCY TEXT:UNKNOWN
     Route: 048
     Dates: start: 20230420
  18. ALIZAPRIDE HYDROCHLORIDE [Concomitant]
     Active Substance: ALIZAPRIDE HYDROCHLORIDE
     Indication: Nausea
     Route: 048
     Dates: start: 20230414, end: 2023
  19. POLYETHYLENE GLYCOL 3350\POTASSIUM CHLORIDE\SODIUM BICARBONATE\SODIUM [Concomitant]
     Active Substance: POLYETHYLENE GLYCOL 3350\POTASSIUM CHLORIDE\SODIUM BICARBONATE\SODIUM CHLORIDE
     Indication: Constipation
     Route: 048
     Dates: start: 20180306
  20. ONDANSETRON [Concomitant]
     Active Substance: ONDANSETRON
     Dosage: NAUSSEA CAUSED BY CHEMOTHERAPY
     Route: 048
     Dates: start: 20231011
  21. MEDROL [Concomitant]
     Active Substance: METHYLPREDNISOLONE
     Route: 048
     Dates: start: 20230507
  22. RIVAROXABAN [Concomitant]
     Active Substance: RIVAROXABAN
     Route: 048
     Dates: start: 20230602, end: 20230623
  23. RIVAROXABAN [Concomitant]
     Active Substance: RIVAROXABAN
     Route: 048
     Dates: start: 20230624
  24. PANTOPRAZOLE [Concomitant]
     Active Substance: PANTOPRAZOLE
     Indication: Oesophagitis
     Route: 048
     Dates: start: 20231130

REACTIONS (1)
  - Periarthritis [Unknown]

NARRATIVE: CASE EVENT DATE: 20220816
